FAERS Safety Report 8965652 (Version 1)
Quarter: 2012Q4

REPORT INFORMATION
  Report Type: Spontaneous
  Country: US (occurrence: None)
  Receive Date: 20121212
  Receipt Date: 20121212
  Transmission Date: 20130627
  Serious: Yes (Other)
  Sender: FDA-Public Use
  Company Number: None

PATIENT
  Sex: Female
  Weight: 54 kg

DRUGS (2)
  1. NTG MICRO MIST SUNLESS TANNING SPRAY DEEP [Suspect]
     Dosage: liberal, 1Xweek, Topical
     Route: 061
     Dates: end: 20121103
  2. NTG BODY OIL [Suspect]
     Dosage: liberal, 1Xweek, Topical
     Route: 061
     Dates: end: 20121103

REACTIONS (5)
  - Urticaria [None]
  - Rash [None]
  - Swelling [None]
  - Pruritus [None]
  - Scab [None]
